FAERS Safety Report 6704203-2 (Version None)
Quarter: 2010Q2

REPORT INFORMATION
  Report Type: 
  Country: None (occurrence: None)
  Receive Date: 20100423
  Receipt Date: 20100122
  Transmission Date: 20101027
  Serious: No
  Sender: FDA-Public Use
  Company Number: ALL1-2010-00335

PATIENT
  Age: 17 Year
  Sex: Male

DRUGS (16)
  1. VYVANSE [Suspect]
     Indication: ATTENTION DEFICIT/HYPERACTIVITY DISORDER
     Dosage: 50 MG, 1X/DAY:QD, ORAL
     Route: 048
     Dates: start: 20090901, end: 20090101
  2. PULMICORT [Concomitant]
  3. FLOVENT [Concomitant]
  4. ALBUTEROL [Concomitant]
  5. . [Concomitant]
  6. . [Concomitant]
  7. . [Concomitant]
  8. . [Concomitant]
  9. . [Concomitant]
  10. . [Concomitant]
  11. . [Concomitant]
  12. . [Concomitant]
  13. . [Concomitant]
  14. . [Concomitant]
  15. . [Concomitant]
  16. . [Concomitant]

REACTIONS (2)
  - ALOPECIA [None]
  - OFF LABEL USE [None]
